FAERS Safety Report 11971994 (Version 1)
Quarter: 2016Q1

REPORT INFORMATION
  Report Type: Spontaneous
  Country: US (occurrence: US)
  Receive Date: 20160128
  Receipt Date: 20160128
  Transmission Date: 20160526
  Serious: No
  Sender: FDA-Public Use
  Company Number: US-PFIZER INC-2016000613

PATIENT
  Sex: Female

DRUGS (1)
  1. ADVIL [Suspect]
     Active Substance: IBUPROFEN
     Indication: HEADACHE
     Dosage: TOOK A COUPLE YESTERDAY MORNING, TOOK COUPLE LAST NIGHT AND TOOK A COUPLE THIS MORNING

REACTIONS (5)
  - Hyperhidrosis [Unknown]
  - Cold sweat [Unknown]
  - Asthenia [Unknown]
  - Pain [Unknown]
  - Extra dose administered [Unknown]
